FAERS Safety Report 6418121-0 (Version None)
Quarter: 2009Q4

REPORT INFORMATION
  Report Type: 
  Country: None (occurrence: None)
  Receive Date: 20091026
  Receipt Date: 20091013
  Transmission Date: 20100525
  Serious: Yes (Life-Threatening)
  Sender: FDA-Public Use
  Company Number: ADR38132009

PATIENT
  Age: 88 Year
  Sex: Female

DRUGS (1)
  1. SIMVASTATIN [Suspect]
     Dates: start: 20060401, end: 20071018

REACTIONS (3)
  - ASTHENIA [None]
  - MEMORY IMPAIRMENT [None]
  - NEUROPATHY PERIPHERAL [None]
